FAERS Safety Report 9649503 (Version 2)
Quarter: 2013Q4

REPORT INFORMATION
  Report Type: Report from Study
  Country: NL (occurrence: NL)
  Receive Date: 20131028
  Receipt Date: 20131114
  Transmission Date: 20140711
  Serious: Yes (Death)
  Sender: FDA-Public Use
  Company Number: PHHY2013NL121583

PATIENT
  Age: 80 Year
  Sex: Male

DRUGS (14)
  1. ACLASTA [Suspect]
     Indication: OSTEOPOROSIS
     Dosage: 5 MG, ONCE EVERY 52 WEEKS
     Route: 042
     Dates: start: 2009
  2. ACLASTA [Suspect]
     Indication: INTERVERTEBRAL DISC DISORDER
     Dosage: 5 MG, ONCE EVERY 52 WEEKS
     Route: 042
     Dates: start: 20101021
  3. ACLASTA [Suspect]
     Dosage: 5 MG, ONCE EVERY 52 WEEKS
     Route: 042
     Dates: start: 20111108
  4. ACLASTA [Suspect]
     Dosage: 5 MG, ONCE EVERY 52 WEEKS
     Route: 042
     Dates: start: 20121107
  5. CALCIUM D3                         /00944201/ [Concomitant]
     Dosage: 1DD1
  6. FOLIC ACID [Concomitant]
     Dosage: 5 MG, QW2
  7. MELOXICAM [Concomitant]
     Dosage: 2 DF, UNK
  8. OMEPRAZOL//OMEPRAZOLE SODIUM [Concomitant]
     Dosage: 1 DF, UNK
  9. OXYCONTIN [Concomitant]
     Dosage: 2 DF, UNK
  10. PARACETAMOL [Concomitant]
     Dosage: 4 DF, UNK
  11. PREDNISON [Concomitant]
     Dosage: 2 DF, UNK
  12. MIRTAZAPINE [Concomitant]
     Dosage: 1 DF, UNK
  13. MOVICOLON [Concomitant]
     Dosage: 1 DF, UNK
  14. VENLAFAXINE [Concomitant]
     Dosage: 1 DF, UNK

REACTIONS (1)
  - Death [Fatal]
